FAERS Safety Report 9449255 (Version 7)
Quarter: 2015Q2

REPORT INFORMATION
  Report Type: Spontaneous
  Country: US (occurrence: US)
  Receive Date: 20130808
  Receipt Date: 20150511
  Transmission Date: 20150821
  Serious: Yes (Hospitalization, Other)
  Sender: FDA-Public Use
  Company Number: US-GLAXOSMITHKLINE-A1036856A

PATIENT
  Sex: Female

DRUGS (6)
  1. FLOLAN [Suspect]
     Active Substance: EPOPROSTENOL SODIUM
     Dosage: 38.89 NG/KG/MIN
  2. OMEPRAZOLE. [Suspect]
     Active Substance: OMEPRAZOLE
     Indication: ABDOMINAL PAIN UPPER
     Route: 065
  3. FLOLAN [Suspect]
     Active Substance: EPOPROSTENOL SODIUM
     Indication: PULMONARY ARTERIAL HYPERTENSION
     Dosage: 10.1 NG/KG/MIN CONTINUOUSLY (CONCENTRATION 30,000 NG/ML; 1.5 MG VIAL STRENGTH)16.41 NG/KG/MIN C[...]
     Route: 042
     Dates: start: 20130703
  4. FLOLAN [Suspect]
     Active Substance: EPOPROSTENOL SODIUM
     Dosage: UNK
     Dates: start: 20130711
  5. FLOLAN [Suspect]
     Active Substance: EPOPROSTENOL SODIUM
     Dosage: 38.9 NG/KG/MIN CONTINUOUS
     Dates: start: 20130711
  6. FLOLAN [Suspect]
     Active Substance: EPOPROSTENOL SODIUM
     Dosage: UNK
     Dates: start: 20130711

REACTIONS (22)
  - Faeces discoloured [Unknown]
  - Adverse event [Unknown]
  - Diarrhoea [Not Recovered/Not Resolved]
  - Cyst removal [Unknown]
  - Transfusion [Unknown]
  - Catheter site erythema [Unknown]
  - Catheter site infection [Unknown]
  - Catheter site pain [Unknown]
  - Back pain [Not Recovered/Not Resolved]
  - Gastroenteritis [Unknown]
  - Abdominal pain upper [Not Recovered/Not Resolved]
  - Fluid retention [Unknown]
  - Thermal burn [Unknown]
  - Ill-defined disorder [Recovering/Resolving]
  - Gastric disorder [Unknown]
  - Catheter site swelling [Unknown]
  - Faecal incontinence [Unknown]
  - Haemoglobin decreased [Unknown]
  - Chest pain [Unknown]
  - Dyspnoea [Unknown]
  - Pain in jaw [Unknown]
  - Dyspnoea exertional [Unknown]

NARRATIVE: CASE EVENT DATE: 2013
